FAERS Safety Report 6395105-2 (Version None)
Quarter: 2009Q4

REPORT INFORMATION
  Report Type: 
  Country: None (occurrence: None)
  Receive Date: 20091009
  Receipt Date: 20090930
  Transmission Date: 20100525
  Serious: Yes (Hospitalization, Other)
  Sender: FDA-Public Use
  Company Number: US-AMGEN-QUU367120

PATIENT
  Sex: Female

DRUGS (2)
  1. ENBREL [Suspect]
     Indication: RHEUMATOID ARTHRITIS
     Route: 058
  2. LEFLUNOMIDE [Concomitant]
     Route: 048

REACTIONS (5)
  - ASTHMA [None]
  - CARDIAC DISORDER [None]
  - PNEUMONIA [None]
  - URINARY TRACT INFECTION [None]
  - WOUND INFECTION [None]
